FAERS Safety Report 4934861-4 (Version None)
Quarter: 2006Q1

REPORT INFORMATION
  Report Type: 
  Country: None (occurrence: None)
  Receive Date: 20060302
  Receipt Date: 20060220
  Transmission Date: 20060701
  Serious: Yes (Death, Life-Threatening)
  Sender: FDA-Public Use
  Company Number: 2006022600

PATIENT
  Age: 80 Year
  Sex: Female

DRUGS (15)
  1. NORVASC [Suspect]
     Indication: HYPERTENSION
     Dosage: 5 MG (DAILY), ORAL
     Route: 048
     Dates: start: 20051201, end: 20060213
  2. VEGETAMIN (CHLORPROMAZINE HYDROCHLORIDE, PHENOBARBITAL, PROMETHAZINE H [Suspect]
     Indication: NASOPHARYNGITIS
     Dosage: ORAL
     Route: 048
     Dates: start: 20060205, end: 20060213
  3. MODACIN (CEFTAZIDIME) [Suspect]
     Indication: INFECTION
     Dosage: 2 GRAM (DAILY), INTRAVENOUS
     Route: 042
     Dates: start: 20060205
  4. TAMIFLU [Suspect]
     Indication: INFLUENZA
     Dosage: 150 MG (DAILY), ORAL
     Route: 048
     Dates: start: 20060201, end: 20060201
  5. CALONAL (PARACETAMOL) [Suspect]
     Indication: PYREXIA
     Dosage: (PRN), ORAL
     Route: 048
     Dates: start: 20060205, end: 20060213
  6. BUFFERIN [Suspect]
     Indication: ILL-DEFINED DISORDER
     Dosage: ORAL
     Route: 048
     Dates: end: 20060213
  7. ALDACTONE [Concomitant]
  8. VOLTAREN [Concomitant]
  9. AMINOFLUID (AMINO ACIDS NOS, ELECTROLYTES NOS, GLUCOSE) [Concomitant]
  10. VITAMIN B 1-6-12 (CYANOCOBALAMIN, PYRIDOXINE HYDROCHLORIDE, THIAMINE H [Concomitant]
  11. POTASSIUM CHLORIDE [Concomitant]
  12. BUFFERIN [Concomitant]
  13. PENMALIN (PIPERACILLIN SODIUM) [Concomitant]
  14. LASIX [Concomitant]
  15. MICARDIS [Concomitant]

REACTIONS (12)
  - ASCITES [None]
  - DISSEMINATED INTRAVASCULAR COAGULATION [None]
  - GENERALISED OEDEMA [None]
  - INFECTION [None]
  - INFLUENZA [None]
  - MUCOUS MEMBRANE DISORDER [None]
  - MULTI-ORGAN FAILURE [None]
  - NASOPHARYNGITIS [None]
  - PULMONARY CONGESTION [None]
  - PYREXIA [None]
  - STEVENS-JOHNSON SYNDROME [None]
  - TOXIC EPIDERMAL NECROLYSIS [None]
